FAERS Safety Report 11387764 (Version 2)
Quarter: 2015Q3

REPORT INFORMATION
  Report Type: Report from Study
  Country: US (occurrence: US)
  Receive Date: 20150817
  Receipt Date: 20150818
  Transmission Date: 20151125
  Serious: Yes (Disabling, Other)
  Sender: FDA-Public Use
  Company Number: US-SA-2015SA120815

PATIENT
  Age: 57 Year
  Sex: Female

DRUGS (2)
  1. LANTUS SOLOSTAR [Suspect]
     Active Substance: INSULIN GLARGINE
     Indication: TYPE 2 DIABETES MELLITUS
     Dosage: DOSE:42 UNIT(S)
     Route: 065
     Dates: start: 2005
  2. SOLOSTAR [Suspect]
     Active Substance: DEVICE
     Dates: start: 2005

REACTIONS (4)
  - Fall [Unknown]
  - Disability [Unknown]
  - Injection site bruising [Unknown]
  - Surgery [Unknown]
